FAERS Safety Report 6684204-3 (Version None)
Quarter: 2010Q2

REPORT INFORMATION
  Report Type: 
  Country: None (occurrence: None)
  Receive Date: 20100416
  Receipt Date: 20100407
  Transmission Date: 20101027
  Serious: Yes (Death, Other)
  Sender: FDA-Public Use
  Company Number: TR-PFIZER INC-2010045020

PATIENT
  Age: 70 Year
  Sex: Male

DRUGS (1)
  1. SUTENT [Suspect]
     Indication: METASTATIC RENAL CELL CARCINOMA
     Dosage: 50 MG, 1X/DAY, 4 WEEKS ON, 2 WEEKS OFF
     Route: 048
     Dates: start: 20090701, end: 20100101

REACTIONS (15)
  - ANAEMIA [None]
  - ASTHENIA [None]
  - DEATH [None]
  - DIARRHOEA [None]
  - DRUG TOXICITY [None]
  - HYPERTENSION [None]
  - INFECTION [None]
  - NAUSEA [None]
  - NEUTROPENIA [None]
  - OEDEMA [None]
  - PALMAR-PLANTAR ERYTHRODYSAESTHESIA SYNDROME [None]
  - RASH [None]
  - STOMATITIS [None]
  - THROMBOCYTOPENIA [None]
  - VOMITING [None]
